FAERS Safety Report 6388378-3 (Version None)
Quarter: 2009Q4

REPORT INFORMATION
  Report Type: 
  Country: None (occurrence: None)
  Receive Date: 20091001
  Receipt Date: 20091001
  Transmission Date: 20100525
  Serious: Yes (Other)
  Sender: FDA-Public Use
  Company Number: None

PATIENT
  Age: 58 Year
  Sex: Male
  Weight: 81.8 kg

DRUGS (1)
  1. SKELAXIN [Suspect]
     Indication: MUSCLE STRAIN
     Dosage: 800 MG 1 PER DAY ORAL 047
     Route: 048
     Dates: start: 20090828, end: 20090914

REACTIONS (6)
  - CONSTIPATION [None]
  - FEAR [None]
  - MUSCLE SPASMS [None]
  - MUSCLE STRAIN [None]
  - PAIN [None]
  - SLEEP DISORDER [None]
